FAERS Safety Report 9778586 (Version 1)
Quarter: 2013Q4

REPORT INFORMATION
  Report Type: Spontaneous
  Country: GB (occurrence: GB)
  Receive Date: 20131223
  Receipt Date: 20131223
  Transmission Date: 20140711
  Serious: Yes (Other)
  Sender: FDA-Public Use
  Company Number: GB-MYLANLABS-2013S1027872

PATIENT
  Age: 65 Year
  Sex: Male

DRUGS (3)
  1. AMIODARONE [Suspect]
     Indication: PRODUCT USED FOR UNKNOWN INDICATION
  2. YERVOY [Suspect]
     Indication: MALIGNANT MELANOMA
  3. RIVAROXABAN [Concomitant]
     Indication: PRODUCT USED FOR UNKNOWN INDICATION

REACTIONS (3)
  - Hypopituitarism [Unknown]
  - Muscular weakness [Unknown]
  - Peripheral sensory neuropathy [Unknown]
